FAERS Safety Report 4301826-5 (Version None)
Quarter: 2004Q1

REPORT INFORMATION
  Report Type: 
  Country: None (occurrence: None)
  Receive Date: 20040218
  Receipt Date: 20030311
  Transmission Date: 20041129
  Serious: Yes (Hospitalization)
  Sender: FDA-Public Use
  Company Number: K200300396

PATIENT
  Age: 58 Year
  Sex: Male
  Weight: 88.4 kg

DRUGS (6)
  1. PROCANBID [Suspect]
     Indication: ATRIAL FIBRILLATION
     Dosage: 500;1500; 1000 MG, BID, ORAL
     Route: 048
     Dates: start: 20020101, end: 20030306
  2. PROCANBID [Suspect]
     Indication: ATRIAL FIBRILLATION
     Dosage: 500;1500; 1000 MG, BID, ORAL
     Route: 048
     Dates: start: 20030306, end: 20030308
  3. PROCANBID [Suspect]
     Indication: ATRIAL FIBRILLATION
     Dosage: 500;1500; 1000 MG, BID, ORAL
     Route: 048
     Dates: start: 20030309
  4. LOTREL [Concomitant]
  5. FLOMAX [Concomitant]
  6. PAXIL [Concomitant]

REACTIONS (3)
  - ATRIAL FIBRILLATION [None]
  - DRUG INEFFECTIVE [None]
  - DRUG LEVEL DECREASED [None]
